FAERS Safety Report 20197171 (Version 2)
Quarter: 2022Q1

REPORT INFORMATION
  Report Type: Spontaneous
  Country: DZ (occurrence: None)
  Receive Date: 20211217
  Receipt Date: 20220104
  Transmission Date: 20220423
  Serious: Yes (Other)
  Sender: FDA-Public Use
  Company Number: DZ-Hikma Pharmaceuticals-DZ-H14001-21-05355

PATIENT
  Age: 13 Year
  Sex: Male

DRUGS (1)
  1. BUPRENORPHINE [Suspect]
     Active Substance: BUPRENORPHINE
     Indication: Toothache
     Route: 048
     Dates: start: 20211126, end: 20211127

REACTIONS (3)
  - Toxic skin eruption [Recovered/Resolved]
  - Periorbital oedema [Recovered/Resolved]
  - Conjunctival oedema [Recovered/Resolved]

NARRATIVE: CASE EVENT DATE: 20211126
